FAERS Safety Report 4377133-1 (Version None)
Quarter: 2004Q2

REPORT INFORMATION
  Report Type: 
  Country: None (occurrence: None)
  Receive Date: 20040608
  Receipt Date: 20040526
  Transmission Date: 20050107
  Serious: Yes (Hospitalization, Other)
  Sender: FDA-Public Use
  Company Number: HQWYE135728MAY04

PATIENT
  Age: 52 Year
  Sex: Female

DRUGS (10)
  1. RAPAMUNE [Suspect]
     Indication: IMMUNOSUPPRESSION
  2. MYCOPHENOLATE MOFETIL (MYCOPHENOLATE MOFETIL) [Concomitant]
  3. ATORVASTATIN (ATORVASTATIN) [Concomitant]
  4. ATENOLOL [Concomitant]
  5. DOXAZOSIN (DOXAZOSIN) [Concomitant]
  6. RANITIDINE [Concomitant]
  7. LEVOTHYROXINE SODIUM [Concomitant]
  8. ERYTHROPOIETIN (ERYTHROPOIETIN) [Concomitant]
  9. CORTICOSTEROID NOS (CORTICOSTEROID NOS) [Concomitant]
  10. IMMUNOSUPPRESSIVE AGENTS (IMMUNOSUPPRESSIVE AGENTS) [Concomitant]

REACTIONS (10)
  - ANOREXIA [None]
  - ASTHENIA [None]
  - BLEEDING TIME ABNORMAL [None]
  - BLOOD LACTATE DEHYDROGENASE INCREASED [None]
  - BLOOD SMEAR TEST ABNORMAL [None]
  - COAGULOPATHY [None]
  - FIBRIN D DIMER INCREASED [None]
  - FIBRIN DEGRADATION PRODUCTS INCREASED [None]
  - LABORATORY TEST ABNORMAL [None]
  - PYREXIA [None]
